FAERS Safety Report 5020903-7 (Version None)
Quarter: 2006Q2

REPORT INFORMATION
  Report Type: 
  Country: None (occurrence: None)
  Receive Date: 20060608
  Receipt Date: 20000403
  Transmission Date: 20061013
  Serious: Yes (Death, Other)
  Sender: FDA-Public Use
  Company Number: DE-BRISTOL-MYERS SQUIBB COMPANY-13384920

PATIENT
  Age: 52 Year
  Sex: Male
  Weight: 72 kg

DRUGS (4)
  1. TAXOL [Suspect]
     Indication: OROPHARYNGEAL CANCER STAGE UNSPECIFIED
     Route: 042
     Dates: start: 20000128, end: 20000204
  2. CARBOPLATIN [Suspect]
     Indication: OROPHARYNGEAL CANCER STAGE UNSPECIFIED
     Dates: start: 20000128, end: 20000204
  3. FORTECORTIN [Concomitant]
     Indication: ANTIEMETIC SUPPORTIVE CARE
     Dates: start: 20000128
  4. ZOFRAN [Concomitant]
     Route: 042
     Dates: start: 20000204

REACTIONS (4)
  - DEATH [None]
  - DYSPNOEA [None]
  - MALIGNANT NEOPLASM PROGRESSION [None]
  - PSYCHOTIC DISORDER [None]
